FAERS Safety Report 8304371-5 (Version None)
Quarter: 2012Q2

REPORT INFORMATION
  Report Type: 
  Country: None (occurrence: None)
  Receive Date: 20120423
  Receipt Date: 20120409
  Transmission Date: 20120825
  Serious: Yes (Other)
  Sender: FDA-Public Use
  Company Number: AE-ELI_LILLY_AND_COMPANY-AE201202007963

PATIENT
  Sex: Male

DRUGS (2)
  1. OLANZAPINE [Suspect]
     Dosage: 15 MG, UNK
     Dates: start: 20091011
  2. ARIPIPRAZOLE [Concomitant]
     Dosage: UNK
     Dates: start: 20091011

REACTIONS (1)
  - NEUTROPENIA [None]
